FAERS Safety Report 22255924 (Version 1)
Quarter: 2023Q2

REPORT INFORMATION
  Report Type: Spontaneous
  Country: US (occurrence: US)
  Receive Date: 20230426
  Receipt Date: 20230426
  Transmission Date: 20230721
  Serious: No
  Sender: FDA-Public Use
  Company Number: US-AMGEN-USASP2023071687

PATIENT

DRUGS (1)
  1. PROLIA [Suspect]
     Active Substance: DENOSUMAB
     Indication: Product used for unknown indication
     Dosage: 60 MILLIGRAM, UNK
     Route: 065

REACTIONS (2)
  - Product storage error [Recovered/Resolved]
  - Intercepted product administration error [Recovered/Resolved]

NARRATIVE: CASE EVENT DATE: 20230421
